FAERS Safety Report 5624099-X (Version None)
Quarter: 2008Q1

REPORT INFORMATION
  Report Type: 
  Country: None (occurrence: None)
  Receive Date: 20080213
  Receipt Date: 20071112
  Transmission Date: 20080703
  Serious: No
  Sender: FDA-Public Use
  Company Number: US-KINGPHARMUSA00001-K200701463

PATIENT

DRUGS (7)
  1. EPIPEN [Suspect]
     Dosage: .3 MG, SINGLE
     Route: 030
     Dates: start: 20071031, end: 20071031
  2. ADVAIR DISKUS 100/50 [Concomitant]
     Indication: ASTHMA
  3. ADVAIR DISKUS 100/50 [Concomitant]
     Indication: HYPERSENSITIVITY
  4. SINGULAIR [Concomitant]
     Indication: ASTHMA
  5. SINGULAIR [Concomitant]
     Indication: HYPERSENSITIVITY
  6. ALBUTEROL [Concomitant]
     Indication: ASTHMA
  7. ALBUTEROL [Concomitant]
     Indication: HYPERSENSITIVITY

REACTIONS (3)
  - ACCIDENTAL EXPOSURE [None]
  - INJECTION SITE PAIN [None]
  - PSYCHOMOTOR HYPERACTIVITY [None]
